FAERS Safety Report 9175621 (Version 2)
Quarter: 2013Q4

REPORT INFORMATION
  Report Type: Spontaneous
  Country: US (occurrence: US)
  Receive Date: 20120913
  Receipt Date: 20131106
  Transmission Date: 20140711
  Serious: Yes (Death)
  Sender: FDA-Public Use
  Company Number: US-009507513-1209USA003764

PATIENT
  Sex: 0

DRUGS (1)
  1. MEVACOR TABLET [Suspect]
     Route: 048

REACTIONS (4)
  - Myopathy [Fatal]
  - Myalgia [Fatal]
  - Rhabdomyolysis [Fatal]
  - Myositis [Fatal]
